FAERS Safety Report 18236800 (Version 2)
Quarter: 2020Q4

REPORT INFORMATION
  Report Type: Report from Study
  Country: None (occurrence: US)
  Receive Date: 20200907
  Receipt Date: 20201208
  Transmission Date: 20210113
  Serious: Yes (Hospitalization)
  Sender: FDA-Public Use
  Company Number: US-ABBVIE-20K-163-3551259-00

PATIENT
  Sex: Female

DRUGS (2)
  1. IMBRUVICA [Suspect]
     Active Substance: IBRUTINIB
     Indication: CHRONIC LYMPHOCYTIC LEUKAEMIA
     Route: 048
     Dates: start: 20190611
  2. IMBRUVICA [Suspect]
     Active Substance: IBRUTINIB
     Indication: CHRONIC LYMPHOCYTIC LEUKAEMIA

REACTIONS (7)
  - Diarrhoea [Unknown]
  - Gastrointestinal wall thickening [Unknown]
  - Ageusia [Recovering/Resolving]
  - Asthenia [Unknown]
  - Loss of consciousness [Unknown]
  - Dehydration [Unknown]
  - Pneumonia [Unknown]
